FAERS Safety Report 19877368 (Version 1)
Quarter: 2021Q3

REPORT INFORMATION
  Report Type: Spontaneous
  Country: US (occurrence: US)
  Receive Date: 20210924
  Receipt Date: 20210924
  Transmission Date: 20211014
  Serious: No
  Sender: FDA-Public Use
  Company Number: US-ALLERGAN-2115868US

PATIENT
  Age: 27 Year
  Sex: Female

DRUGS (1)
  1. SUCRALFATE ORAL SUSPENSION [Suspect]
     Active Substance: SUCRALFATE
     Indication: GASTRIC ULCER
     Dosage: 10ML BY MOUTH FOUR TIMES DAILY
     Route: 048
     Dates: start: 202104

REACTIONS (4)
  - Poor quality product administered [Unknown]
  - Liquid product physical issue [Unknown]
  - Product colour issue [Unknown]
  - Product deposit [Unknown]

NARRATIVE: CASE EVENT DATE: 202104
